FAERS Safety Report 19868158 (Version 1)
Quarter: 2021Q3

REPORT INFORMATION
  Report Type: Spontaneous
  Country: US (occurrence: US)
  Receive Date: 20210922
  Receipt Date: 20210922
  Transmission Date: 20211014
  Serious: No
  Sender: FDA-Public Use
  Company Number: US-PFIZER INC-2021386656

PATIENT
  Age: 10 Year
  Sex: Female

DRUGS (1)
  1. SIROLIMUS. [Suspect]
     Active Substance: SIROLIMUS
     Dosage: UNK

REACTIONS (5)
  - PIK3CA-activated mutation [Unknown]
  - Blister [Unknown]
  - Pain [Unknown]
  - Abdominal discomfort [Unknown]
  - Proctitis [Unknown]
